FAERS Safety Report 17989008 (Version 1)
Quarter: 2020Q3

REPORT INFORMATION
  Report Type: Spontaneous
  Country: US (occurrence: US)
  Receive Date: 20200707
  Receipt Date: 20200707
  Transmission Date: 20201103
  Serious: Yes (Other)
  Sender: FDA-Public Use
  Company Number: None

PATIENT
  Age: 60 Year
  Sex: Male
  Weight: 79.4 kg

DRUGS (9)
  1. DEXAMETHASONE 6 MG PO DAILY [Concomitant]
     Dates: start: 20200702
  2. LACTULOSE 40 G PO BID PRN [Concomitant]
  3. MELATONIN 15 MG PO HS [Concomitant]
  4. CLONAZEPAM 0.5 MG PO BID [Concomitant]
  5. REMDESIVIR. [Suspect]
     Active Substance: REMDESIVIR
     Indication: COVID-19
     Dosage: ?          OTHER FREQUENCY:ONCE;?
     Route: 042
     Dates: start: 20200703, end: 20200703
  6. AMMONIUM LACTATE TOPICAL 1 APP BID [Concomitant]
  7. DIVALPROEX SODIUM 125 MG EC TABLET PO TID [Concomitant]
  8. LEVETIRACETAM 1000 MG PO HS [Concomitant]
  9. MIRTAZAPINE 15 MG DIS TABLET PO HS [Concomitant]
     Dates: end: 20200704

REACTIONS (2)
  - White blood cell count decreased [None]
  - Condition aggravated [None]

NARRATIVE: CASE EVENT DATE: 20200703
